FAERS Safety Report 20156947 (Version 1)
Quarter: 2021Q4

REPORT INFORMATION
  Report Type: Spontaneous
  Country: CA (occurrence: CA)
  Receive Date: 20211207
  Receipt Date: 20211207
  Transmission Date: 20220303
  Serious: Yes (Hospitalization, Other)
  Sender: FDA-Public Use
  Company Number: CA-BRISTOL-MYERS SQUIBB COMPANY-BMS-2021-126831

PATIENT
  Age: 72 Year
  Sex: Male

DRUGS (16)
  1. ELIQUIS [Suspect]
     Active Substance: APIXABAN
     Route: 065
  2. LEVOFLOXACIN [Suspect]
     Active Substance: LEVOFLOXACIN
     Dosage: 500 MILLIGRAM
     Route: 065
  3. BUDESONIDE [Suspect]
     Active Substance: BUDESONIDE
     Route: 065
  4. DILTIAZEM [Suspect]
     Active Substance: DILTIAZEM
     Dosage: 120 MILLIGRAM
     Route: 065
  5. DOXAZOSIN MESYLATE [Suspect]
     Active Substance: DOXAZOSIN MESYLATE
     Dosage: 4 MILLIGRAM
     Route: 065
  6. DUTASTERIDE [Suspect]
     Active Substance: DUTASTERIDE
     Dosage: 0.5 MILLIGRAM
     Route: 065
  7. ERGOCALCIFEROL [Suspect]
     Active Substance: ERGOCALCIFEROL
     Route: 065
  8. ESCITALOPRAM [Suspect]
     Active Substance: ESCITALOPRAM OXALATE
     Dosage: 10 MILLIGRAM
     Route: 065
  9. FLUTICASONE PROPIONATE\SALMETEROL XINAFOATE [Suspect]
     Active Substance: FLUTICASONE PROPIONATE\SALMETEROL XINAFOATE
     Dosage: UNK
     Route: 065
  10. FORMOTEROL\MOMETASONE [Suspect]
     Active Substance: FORMOTEROL\MOMETASONE
     Dosage: 2 DOSAGE FORM, BID
     Route: 065
  11. MOXIFLOXACIN [Suspect]
     Active Substance: MOXIFLOXACIN
     Route: 065
  12. OMNARIS [Suspect]
     Active Substance: CICLESONIDE
     Route: 065
  13. PREDNISONE [Suspect]
     Active Substance: PREDNISONE
     Dosage: 15 MILLIGRAM, QD
     Route: 065
  14. ALBUTEROL [Suspect]
     Active Substance: ALBUTEROL
     Indication: Asthma
     Route: 065
  15. SPIRIVA [Suspect]
     Active Substance: TIOTROPIUM BROMIDE MONOHYDRATE
     Dosage: 2 DOSAGE FORM, QD
     Route: 065
  16. ROSUVASTATIN [Concomitant]
     Active Substance: ROSUVASTATIN
     Route: 058

REACTIONS (18)
  - Arteriosclerosis [Unknown]
  - Asthma [Unknown]
  - Condition aggravated [Unknown]
  - Conjunctivitis allergic [Unknown]
  - Dust allergy [Unknown]
  - Full blood count abnormal [Unknown]
  - Hypoxia [Unknown]
  - Mite allergy [Unknown]
  - Mycotic allergy [Unknown]
  - Nodule [Unknown]
  - Normochromic normocytic anaemia [Unknown]
  - Pulmonary embolism [Unknown]
  - Productive cough [Unknown]
  - Sleep disorder due to a general medical condition [Unknown]
  - Spirometry abnormal [Unknown]
  - Therapeutic product effect incomplete [Unknown]
  - Thrombosis [Unknown]
  - Wheezing [Unknown]
